FAERS Safety Report 6796109-8 (Version None)
Quarter: 2010Q2

REPORT INFORMATION
  Report Type: 
  Country: None (occurrence: None)
  Receive Date: 20100625
  Receipt Date: 20100622
  Transmission Date: 20101027
  Serious: Yes (Death, Hospitalization, Other)
  Sender: FDA-Public Use
  Company Number: HU-ROCHE-696210

PATIENT
  Sex: Male
  Weight: 72 kg

DRUGS (37)
  1. BEVACIZUMAB [Suspect]
     Indication: NON-SMALL CELL LUNG CANCER
     Dosage: FREQUENCY: 1X, FORM INFUSION
     Route: 042
     Dates: start: 20091109
  2. BEVACIZUMAB [Suspect]
     Dosage: FREQUENCY AS PER PROTOCOL
     Route: 042
  3. BEVACIZUMAB [Suspect]
     Route: 042
  4. GEMCITABINE HCL [Suspect]
     Indication: NON-SMALL CELL LUNG CANCER
     Dosage: FORM INFUSION, ON DAY 1 AND DAY 8; FREQUENCY: 1XDAILY
     Route: 042
     Dates: start: 20091109, end: 20091117
  5. GEMCITABINE HCL [Suspect]
     Route: 042
     Dates: start: 20091117
  6. GEMCITABINE HCL [Suspect]
     Dosage: FREQUENCY: 2XEVERY THREE WEEK, FORM: INFUSION
     Route: 042
  7. GEMCITABINE HCL [Suspect]
     Route: 042
     Dates: end: 20100223
  8. GEMCITABINE HCL [Suspect]
     Route: 042
     Dates: start: 20100304
  9. GEMCITABINE HCL [Suspect]
     Route: 042
  10. CARBOPLATIN [Suspect]
     Indication: NON-SMALL CELL LUNG CANCER
     Dosage: FORM: INFUSION
     Route: 042
     Dates: start: 20091109
  11. CARBOPLATIN [Suspect]
     Route: 042
  12. CARBOPLATIN [Suspect]
     Route: 042
  13. CARBOPLATIN [Suspect]
     Route: 042
  14. SERETIDE [Concomitant]
     Dosage: DRUG REPORTED AS SERETIDE 500/50; DOSE REPORTED AS 1000 MG/ 100 MG, 500/ 50
     Dates: start: 20091104, end: 20100407
  15. SPIRIVA [Concomitant]
     Dates: start: 20091104, end: 20100407
  16. MEGESIN [Concomitant]
     Dosage: INDICATION: LOSS OF WEIGHT (CACHEXIA)
     Dates: start: 20091109, end: 20100407
  17. CIFRAN [Concomitant]
     Indication: BRONCHOPNEUMONIA
     Dates: start: 20091020, end: 20091024
  18. MEDROL [Concomitant]
     Dates: start: 20091020, end: 20091029
  19. AUGMENTIN '125' [Concomitant]
     Indication: BRONCHOPNEUMONIA
     Dates: start: 20091020, end: 20091026
  20. AUGMENTIN '125' [Concomitant]
     Dates: start: 20100322, end: 20100323
  21. KALIUM-R [Concomitant]
     Indication: PROPHYLAXIS
     Dates: start: 20091020, end: 20091026
  22. KALIUM-R [Concomitant]
     Dosage: INDICATION: PROPHYLAXIS OF HYPOKALEMIA CAUSED BY USING OF MEDROL
     Dates: start: 20091116, end: 20091117
  23. KALIUM-R [Concomitant]
     Dates: start: 20100202
  24. SINECOD [Concomitant]
     Indication: BRONCHOSCOPY
     Dates: start: 20091022, end: 20091022
  25. LIDOCAINE [Concomitant]
     Indication: BRONCHOSCOPY
     Dates: start: 20091022, end: 20091022
  26. ONDANSETRON [Concomitant]
     Indication: PROPHYLAXIS
     Dates: start: 20091109
  27. MEDROL [Concomitant]
     Indication: GRANULOCYTOPENIA
     Dosage: INDICATION: COPD ACUTE EXACERBATION
     Dates: start: 20091020, end: 20091029
  28. MEDROL [Concomitant]
     Dates: start: 20091116, end: 20091117
  29. MEDROL [Concomitant]
     Dosage: INDICATION: THROMBOCYTOPENIA
     Dates: start: 20100202
  30. EPREX [Concomitant]
     Indication: ANAEMIA
     Dates: start: 20091127, end: 20091220
  31. NEORECORMON [Concomitant]
     Indication: ANAEMIA
     Dates: start: 20091215
  32. CONCOR [Concomitant]
     Dates: start: 20091215
  33. HYDROMORPHONE HCL [Concomitant]
     Indication: CHEST PAIN
     Dates: start: 20100104
  34. NEUPOGEN [Concomitant]
     Indication: GRANULOCYTOPENIA
     Dates: start: 20100202, end: 20100203
  35. NEUPOGEN [Concomitant]
     Dates: start: 20100403
  36. NEULASTA [Concomitant]
     Indication: PROPHYLAXIS
     Dates: start: 20100217
  37. BERODUAL [Concomitant]
     Dosage: DRUG - BERODUAL INHALATION
     Dates: start: 20091020, end: 20091029

REACTIONS (17)
  - ANAEMIA [None]
  - BACTERIAL TEST POSITIVE [None]
  - BLOOD PRESSURE INCREASED [None]
  - FEBRILE NEUTROPENIA [None]
  - GRANULOCYTOPENIA [None]
  - HEART RATE INCREASED [None]
  - HYPOXIA [None]
  - LEUKOPENIA [None]
  - METASTASES TO LIVER [None]
  - NEUTROPENIA [None]
  - NEUTROPHIL COUNT INCREASED [None]
  - PEPTOSTREPTOCOCCUS INFECTION [None]
  - PNEUMONIA [None]
  - PYOTHORAX [None]
  - STREPTOCOCCAL INFECTION [None]
  - THROMBOCYTOPENIA [None]
  - WHITE BLOOD CELL COUNT INCREASED [None]
